FAERS Safety Report 5761232-3 (Version None)
Quarter: 2008Q2

REPORT INFORMATION
  Report Type: 
  Country: None (occurrence: None)
  Receive Date: 20080606
  Receipt Date: 20080530
  Transmission Date: 20081010
  Serious: Yes (Other)
  Sender: FDA-Public Use
  Company Number: PHHY2008CA09668

PATIENT

DRUGS (3)
  1. DIOVAN [Suspect]
  2. ADALAT [Concomitant]
  3. RASILEZ [Concomitant]
     Indication: HYPERTENSION

REACTIONS (2)
  - BLOOD PRESSURE INCREASED [None]
  - PARKINSON'S DISEASE [None]
